FAERS Safety Report 9175673 (Version 2)
Quarter: 2013Q4

REPORT INFORMATION
  Report Type: Spontaneous
  Country: SE (occurrence: SE)
  Receive Date: 20120915
  Receipt Date: 20131031
  Transmission Date: 20140711
  Serious: Yes (Disabling)
  Sender: FDA-Public Use
  Company Number: SE-009507513-1209SWE003378

PATIENT
  Age: 68 Year
  Sex: Female

DRUGS (6)
  1. JANUMET [Suspect]
     Dosage: 50 MG/1000 MG, BID
     Route: 048
     Dates: end: 20111024
  2. DICLOFENAC [Suspect]
     Indication: PAIN
     Dosage: 50 MG, 1 - 3 TIMES
  3. INSULATARD (INSULIN HUMAN, ISOPHANE) [Concomitant]
     Dosage: 40 IE/ML
     Route: 042
  4. GLIBENCLAMID [Concomitant]
     Dosage: 3.5 MG, UNK
     Route: 048
  5. TROMBYL [Concomitant]
     Dosage: 75 MG, UNK
     Route: 048
  6. SELOKEN ZOC [Concomitant]
     Dosage: 25 MG, UNK
     Route: 048

REACTIONS (5)
  - Nerve injury [Recovered/Resolved with Sequelae]
  - Hypoaesthesia [Recovered/Resolved with Sequelae]
  - Arthralgia [Recovered/Resolved with Sequelae]
  - Pain in extremity [Recovered/Resolved with Sequelae]
  - Renal impairment [Recovered/Resolved with Sequelae]
